FAERS Safety Report 7291005-4 (Version None)
Quarter: 2011Q1

REPORT INFORMATION
  Report Type: 
  Country: None (occurrence: None)
  Receive Date: 20110214
  Receipt Date: 20110203
  Transmission Date: 20110831
  Serious: Yes (Other)
  Sender: FDA-Public Use
  Company Number: AU-NOVOPROD-300899

PATIENT
  Sex: Female
  Weight: 143 kg

DRUGS (2)
  1. NOVORAPID [Suspect]
     Indication: TYPE 2 DIABETES MELLITUS
     Dosage: 250-350 UNITS
     Route: 058
     Dates: start: 20090201, end: 20100602
  2. PROTAPHANE PENFILL [Suspect]
     Indication: TYPE 2 DIABETES MELLITUS
     Dosage: 60 U, AT NIGHT
     Route: 058
     Dates: start: 20090201, end: 20100602

REACTIONS (4)
  - BLOOD GLUCOSE INCREASED [None]
  - POSTPARTUM HAEMORRHAGE [None]
  - FAILED INDUCTION OF LABOUR [None]
  - DRUG EXPOSURE DURING PREGNANCY [None]
